FAERS Safety Report 7248970-0 (Version None)
Quarter: 2011Q1

REPORT INFORMATION
  Report Type: 
  Country: None (occurrence: None)
  Receive Date: 20110128
  Receipt Date: 20110120
  Transmission Date: 20110831
  Serious: Yes (Hospitalization)
  Sender: FDA-Public Use
  Company Number: PHHY2010JP85232

PATIENT
  Sex: Male

DRUGS (9)
  1. TEGRETOL [Suspect]
     Indication: BIPOLAR I DISORDER
     Dosage: UNK
     Route: 048
     Dates: start: 20101130, end: 20101130
  2. BROTIZOLAM [Concomitant]
     Dosage: UNK
     Route: 048
     Dates: start: 20101130, end: 20101130
  3. DOGMATYL [Concomitant]
     Dosage: UNK
     Dates: start: 20101130, end: 20101130
  4. DEPAKENE [Concomitant]
     Dosage: UNK
     Dates: start: 20101130, end: 20101130
  5. DESYREL [Concomitant]
     Dosage: UNK
     Dates: start: 20101130, end: 20101130
  6. BENZALIN [Concomitant]
     Dosage: UNK
     Route: 048
     Dates: start: 20101130, end: 20101130
  7. SELEGILINE HCL [Suspect]
     Dosage: UNK
     Route: 048
     Dates: start: 20101130, end: 20101130
  8. ROHYPNOL [Concomitant]
     Dosage: UNK
     Route: 048
     Dates: start: 20101130, end: 20101130
  9. ZYPREXA [Concomitant]
     Dosage: UNK
     Route: 048
     Dates: start: 20101130, end: 20101130

REACTIONS (9)
  - MYDRIASIS [None]
  - ALTERED STATE OF CONSCIOUSNESS [None]
  - ANTICONVULSANT DRUG LEVEL INCREASED [None]
  - CONVULSION [None]
  - PYREXIA [None]
  - RESTLESSNESS [None]
  - EYE MOVEMENT DISORDER [None]
  - BUNDLE BRANCH BLOCK [None]
  - OVERDOSE [None]
